FAERS Safety Report 14705693 (Version 1)
Quarter: 2018Q2

REPORT INFORMATION
  Report Type: Other
  Country: DK (occurrence: DK)
  Receive Date: 20180402
  Receipt Date: 20180402
  Transmission Date: 20180711
  Serious: Yes (Disabling)
  Sender: FDA-Public Use
  Company Number: DK-CELLTRION INC.-2018DK018828

PATIENT

DRUGS (2)
  1. REMSIMA [Suspect]
     Active Substance: INFLIXIMAB
     Indication: CROHN^S DISEASE
     Dosage: 330 MG AS NEEDED
     Route: 042
     Dates: start: 20150610, end: 20150610
  2. REMSIMA [Suspect]
     Active Substance: INFLIXIMAB
     Dosage: 330 MG, PRN
     Route: 042
     Dates: start: 20170922, end: 20170922

REACTIONS (2)
  - Optic neuritis [Recovering/Resolving]
  - Visual impairment [Recovering/Resolving]

NARRATIVE: CASE EVENT DATE: 20171005
